FAERS Safety Report 13078753 (Version 1)
Quarter: 2017Q1

REPORT INFORMATION
  Report Type: Spontaneous
  Country: US (occurrence: US)
  Receive Date: 20170102
  Receipt Date: 20170102
  Transmission Date: 20170428
  Serious: Yes (Death)
  Sender: FDA-Public Use
  Company Number: US-TEVA-725445USA

PATIENT
  Age: 44 Year
  Sex: Male

DRUGS (7)
  1. CYCLOBENZAPRINE [Concomitant]
     Active Substance: CYCLOBENZAPRINE
     Route: 065
  2. NORDAZEPAM [Concomitant]
     Active Substance: NORDAZEPAM
     Route: 065
  3. DIAZEPAM. [Concomitant]
     Active Substance: DIAZEPAM
     Route: 065
  4. LOPERAMIDE [Suspect]
     Active Substance: LOPERAMIDE
     Route: 065
  5. TRAZODONE [Interacting]
     Active Substance: TRAZODONE HYDROCHLORIDE
     Route: 065
  6. DULOXETINE. [Concomitant]
     Active Substance: DULOXETINE
     Route: 065
  7. PREGABALIN. [Concomitant]
     Active Substance: PREGABALIN
     Route: 065

REACTIONS (4)
  - Drug interaction [Fatal]
  - Toxicity to various agents [Fatal]
  - Drug abuse [Fatal]
  - Accidental overdose [Fatal]
